FAERS Safety Report 7997501-6 (Version None)
Quarter: 2011Q4

REPORT INFORMATION
  Report Type: 
  Country: None (occurrence: None)
  Receive Date: 20111221
  Receipt Date: 20111221
  Transmission Date: 20120403
  Serious: No
  Sender: FDA-Public Use
  Company Number: None

PATIENT

DRUGS (1)
  1. TUBERCULIN NOS [Suspect]
     Indication: EXPOSURE TO COMMUNICABLE DISEASE
     Dosage: 0.1
     Route: 023
     Dates: start: 20110411, end: 20111128

REACTIONS (3)
  - PRODUCT QUALITY ISSUE [None]
  - FALSE POSITIVE TUBERCULOSIS TEST [None]
  - PRODUCT CONTAMINATION [None]
